FAERS Safety Report 7701794-X (Version None)
Quarter: 2011Q3

REPORT INFORMATION
  Report Type: 
  Country: None (occurrence: None)
  Receive Date: 20110822
  Receipt Date: 20110811
  Transmission Date: 20111222
  Serious: Yes (Hospitalization, Other)
  Sender: FDA-Public Use
  Company Number: CZ-SANOFI-AVENTIS-2011SA051760

PATIENT
  Sex: Female

DRUGS (5)
  1. WARFARIN SODIUM [Interacting]
     Route: 048
  2. CARVEDILOL [Concomitant]
     Route: 048
  3. DRONEDARONE HCL [Suspect]
     Route: 048
     Dates: start: 20110804, end: 20110806
  4. HEPARIN [Concomitant]
     Route: 058
  5. ZYRTEC [Concomitant]
     Route: 048

REACTIONS (3)
  - ACTIVATED PARTIAL THROMBOPLASTIN TIME PROLONGED [None]
  - INTERNATIONAL NORMALISED RATIO INCREASED [None]
  - DRUG INTERACTION [None]
